FAERS Safety Report 17155695 (Version 3)
Quarter: 2020Q1

REPORT INFORMATION
  Report Type: Spontaneous
  Country: FR (occurrence: FR)
  Receive Date: 20191215
  Receipt Date: 20200114
  Transmission Date: 20200409
  Serious: Yes (Other)
  Sender: FDA-Public Use
  Company Number: FR-BEH-2019110269

PATIENT
  Age: 74 Year
  Sex: Male
  Weight: 66 kg

DRUGS (9)
  1. RESPREEZA [Suspect]
     Active Substance: .ALPHA.1-PROTEINASE INHIBITOR HUMAN
     Dosage: 2 GRAM, TOT
     Route: 042
     Dates: start: 20191127
  2. RESPREEZA [Suspect]
     Active Substance: .ALPHA.1-PROTEINASE INHIBITOR HUMAN
     Dosage: 4 GRAM, TOT
     Route: 042
     Dates: start: 20191204
  3. SERETIDE [Concomitant]
     Active Substance: FLUTICASONE PROPIONATE\SALMETEROL XINAFOATE
     Dosage: 500 MICROGRAM, QD
  4. PANTOPRAZOLE [Concomitant]
     Active Substance: PANTOPRAZOLE
     Dosage: 20 MILLIGRAM, QD
     Route: 048
  5. RESPREEZA [Suspect]
     Active Substance: .ALPHA.1-PROTEINASE INHIBITOR HUMAN
     Indication: EMPHYSEMA
     Dosage: 4 GRAM, TOT
     Route: 042
     Dates: start: 20191120
  6. COMBODART [Concomitant]
     Active Substance: DUTASTERIDE\TAMSULOSIN
     Dosage: 0.5MG/0.4 MG, QD
     Route: 048
  7. RESPREEZA [Suspect]
     Active Substance: .ALPHA.1-PROTEINASE INHIBITOR HUMAN
     Indication: ALPHA-1 ANTI-TRYPSIN DEFICIENCY
     Dosage: 4 GRAM, QW
     Route: 042
     Dates: start: 20191120, end: 20191204
  8. SPIRIVA [Concomitant]
     Active Substance: TIOTROPIUM BROMIDE MONOHYDRATE
     Dosage: 2.5 MICROGRAM, BID
  9. CITALOPRAM [Concomitant]
     Active Substance: CITALOPRAM HYDROBROMIDE
     Dosage: 10 MILLIGRAM, QD
     Route: 048

REACTIONS (12)
  - Wrong technique in product usage process [Unknown]
  - Injection site erythema [Recovered/Resolved]
  - Injection site oedema [Unknown]
  - Injection site oedema [Recovered/Resolved]
  - Injection site oedema [Unknown]
  - Vein rupture [Recovered/Resolved]
  - Injection site mass [Recovered/Resolved]
  - Injection site swelling [Recovered/Resolved]
  - Injection site swelling [Unknown]
  - Injection site swelling [Unknown]
  - Therapy change [Unknown]
  - Injection site pain [Recovered/Resolved]

NARRATIVE: CASE EVENT DATE: 20191120
